FAERS Safety Report 7768903-8 (Version None)
Quarter: 2011Q3

REPORT INFORMATION
  Report Type: 
  Country: None (occurrence: None)
  Receive Date: 20110922
  Receipt Date: 20110311
  Transmission Date: 20111222
  Serious: No
  Sender: FDA-Public Use
  Company Number: US-ASTRAZENECA-2011SE13815

PATIENT
  Age: 55 Year
  Sex: Female
  Weight: 113.4 kg

DRUGS (2)
  1. SEROQUEL [Suspect]
     Indication: SUICIDE ATTEMPT
     Route: 048
  2. TYLENOL PM [Concomitant]

REACTIONS (4)
  - NAUSEA [None]
  - INSOMNIA [None]
  - ANXIETY [None]
  - DRUG DOSE OMISSION [None]
